FAERS Safety Report 16325058 (Version 2)
Quarter: 2019Q2

REPORT INFORMATION
  Report Type: Spontaneous
  Country: US (occurrence: US)
  Receive Date: 20190517
  Receipt Date: 20190528
  Transmission Date: 20190711
  Serious: Yes (Other)
  Sender: FDA-Public Use
  Company Number: US-ELI_LILLY_AND_COMPANY-US201905002608

PATIENT
  Sex: Male

DRUGS (2)
  1. FORTEO [Suspect]
     Active Substance: TERIPARATIDE
     Indication: PRODUCT USED FOR UNKNOWN INDICATION
     Dosage: UNK, UNKNOWN
     Route: 065
     Dates: start: 20190107
  2. FORTEO [Suspect]
     Active Substance: TERIPARATIDE
     Dosage: UNK, UNKNOWN
     Route: 065

REACTIONS (9)
  - Plasma cell myeloma [Unknown]
  - Intervertebral disc space narrowing [Unknown]
  - Bone marrow oedema [Unknown]
  - Headache [Unknown]
  - Osteonecrosis [Unknown]
  - Urine calcium increased [Unknown]
  - Spinal cord oedema [Unknown]
  - Memory impairment [Unknown]
  - Spinal compression fracture [Unknown]
